FAERS Safety Report 14931753 (Version 6)
Quarter: 2023Q2

REPORT INFORMATION
  Report Type: Report from Study
  Country: US (occurrence: US)
  Receive Date: 20180524
  Receipt Date: 20230519
  Transmission Date: 20230721
  Serious: Yes (Death, Hospitalization, Other)
  Sender: FDA-Public Use
  Company Number: US-ACADIA PHARMACEUTICALS INC.-ACA-2018-008224

PATIENT
  Sex: Female

DRUGS (14)
  1. NUPLAZID [Suspect]
     Active Substance: PIMAVANSERIN TARTRATE
     Indication: Parkinson^s disease
     Dosage: 34 MILLIGRAM, QD
     Route: 048
  2. NUPLAZID [Suspect]
     Active Substance: PIMAVANSERIN TARTRATE
     Indication: Hallucination
     Dosage: 34 MG, QD
     Route: 048
     Dates: start: 20180223
  3. NUPLAZID [Suspect]
     Active Substance: PIMAVANSERIN TARTRATE
     Indication: Delusion
     Dosage: 34 MG, QD
     Route: 048
     Dates: start: 20180320
  4. NUPLAZID [Suspect]
     Active Substance: PIMAVANSERIN TARTRATE
     Indication: Parkinson^s disease psychosis
  5. ZOLOFT [Concomitant]
     Active Substance: SERTRALINE HYDROCHLORIDE
  6. VITAMIN D3 [Concomitant]
     Active Substance: CHOLECALCIFEROL
  7. SINEMET [Concomitant]
     Active Substance: CARBIDOPA\LEVODOPA
  8. PRAVASTATIN SODIUM [Concomitant]
     Active Substance: PRAVASTATIN SODIUM
  9. LATANOPROST [Concomitant]
     Active Substance: LATANOPROST
  10. DEPAKOTE [Concomitant]
     Active Substance: DIVALPROEX SODIUM
  11. BENICAR [Concomitant]
     Active Substance: OLMESARTAN MEDOXOMIL
  12. AMANTADINE HYDROCHLORIDE [Concomitant]
     Active Substance: AMANTADINE HYDROCHLORIDE
  13. METOPROLOL TARTRATE [Concomitant]
     Active Substance: METOPROLOL TARTRATE
  14. REQUIP [Concomitant]
     Active Substance: ROPINIROLE HYDROCHLORIDE

REACTIONS (12)
  - Death [Fatal]
  - Urinary tract infection [Unknown]
  - Infection [Unknown]
  - Urinary tract infection [Not Recovered/Not Resolved]
  - Product dose omission issue [Unknown]
  - Upper respiratory tract infection [Unknown]
  - Wheezing [Unknown]
  - Decreased appetite [Unknown]
  - Dysgeusia [Not Recovered/Not Resolved]
  - Hypersensitivity [Unknown]
  - Nausea [Unknown]
  - Confusional state [Unknown]

NARRATIVE: CASE EVENT DATE: 20180101
